FAERS Safety Report 8990093 (Version 2)
Quarter: 2013Q1

REPORT INFORMATION
  Report Type: Report from Study
  Country: DE (occurrence: DE)
  Receive Date: 20121228
  Receipt Date: 20130110
  Transmission Date: 20140127
  Serious: Yes (Hospitalization)
  Sender: FDA-Public Use
  Company Number: DE-AMGEN-DEUCT2012083343

PATIENT
  Age: 61 Year
  Sex: Female

DRUGS (12)
  1. ETANERCEPT [Suspect]
     Indication: PRODUCT USED FOR UNKNOWN INDICATION
     Dosage: UNK MG, UNK
     Dates: start: 201204
  2. METHOTREXATE SODIUM [Concomitant]
     Dosage: UNK
     Dates: start: 200508, end: 200810
  3. METHOTREXATE SODIUM [Concomitant]
     Dosage: UNK
     Dates: start: 201001, end: 201006
  4. INFLIXIMAB [Concomitant]
     Dosage: UNK
     Dates: start: 201003, end: 20120308
  5. LEFLUNOMIDE [Concomitant]
     Dosage: UNK
     Dates: start: 200504, end: 200506
  6. SALAZOSULFAPYRIDINE [Concomitant]
     Dosage: UNK
     Dates: start: 200508, end: 200810
  7. HYDROXYCHLOROQUINE [Concomitant]
     Dosage: UNK
     Dates: start: 200812, end: 201001
  8. PREDNISOLON                        /00016201/ [Concomitant]
     Dosage: UNK
     Dates: start: 2000
  9. CALCIUM D3 STADA [Concomitant]
     Dosage: UNK
  10. RAMIPRIL [Concomitant]
     Dosage: UNK
     Dates: start: 200709
  11. AMLODIPINE [Concomitant]
     Dosage: UNK
     Dates: start: 201105
  12. DEKRISTOL [Concomitant]
     Dosage: UNK
     Dates: start: 201101

REACTIONS (1)
  - Spondylitis [Recovered/Resolved]
